APPROVED DRUG PRODUCT: CEFAZOLIN SODIUM
Active Ingredient: CEFAZOLIN SODIUM
Strength: EQ 3GM BASE/VIAL
Dosage Form/Route: POWDER;INTRAVENOUS
Application: N216109 | Product #002
Applicant: HIKMA PHARMACEUTICALS USA INC
Approved: Oct 7, 2022 | RLD: Yes | RS: Yes | Type: RX